FAERS Safety Report 9997895 (Version 1)
Quarter: 2014Q1

REPORT INFORMATION
  Report Type: Spontaneous
  Country: GB (occurrence: US)
  Receive Date: 20140311
  Receipt Date: 20140311
  Transmission Date: 20141002
  Serious: Yes (Death)
  Sender: FDA-Public Use
  Company Number: GB-BAUSCH-BL-2014-001130

PATIENT
  Age: 65 Year
  Sex: Male

DRUGS (8)
  1. DEXAMETHASONE [Suspect]
     Indication: CASTLEMAN^S DISEASE
     Dosage: UNKNOWN
     Route: 065
  2. PREDNISONE [Suspect]
     Indication: CASTLEMAN^S DISEASE
     Dosage: UNKNOWN
     Route: 065
  3. CISPLATIN [Suspect]
     Indication: CASTLEMAN^S DISEASE
     Dosage: UNKNOWN
     Route: 065
  4. CYCLOPHOSPHAMIDE [Suspect]
     Indication: CASTLEMAN^S DISEASE
     Dosage: UNKNOWN
     Route: 065
  5. CYTARABINE [Suspect]
     Indication: CASTLEMAN^S DISEASE
     Dosage: UNKNOWN
     Route: 065
  6. DOXORUBICIN HYDROCHLORIDE [Suspect]
     Indication: CASTLEMAN^S DISEASE
     Dosage: UNKNOWN
  7. RITUXIMAB [Suspect]
     Indication: CASTLEMAN^S DISEASE
     Dosage: UNKNOWN
     Route: 065
  8. VINCRISTINE [Suspect]
     Indication: CASTLEMAN^S DISEASE
     Dosage: UNKNOWN
     Route: 065

REACTIONS (1)
  - Castleman^s disease [Fatal]
